FAERS Safety Report 7402092-4 (Version None)
Quarter: 2011Q2

REPORT INFORMATION
  Report Type: 
  Country: None (occurrence: None)
  Receive Date: 20110408
  Receipt Date: 20110314
  Transmission Date: 20111010
  Serious: No
  Sender: FDA-Public Use
  Company Number: US-B.I. PHARMACEUTICALS,INC./RIDGEFIELD-2011-BP-05001BP

PATIENT
  Sex: Male

DRUGS (4)
  1. PRADAXA [Suspect]
     Indication: ATRIAL FIBRILLATION
     Dosage: 300 MG
     Route: 048
     Dates: start: 20110207
  2. SOTALOL [Concomitant]
     Dates: start: 20110201
  3. LISINOPRIL [Suspect]
  4. MULTAQ [Suspect]
     Dates: start: 20110209

REACTIONS (4)
  - DYSPEPSIA [None]
  - ABDOMINAL TENDERNESS [None]
  - DIARRHOEA [None]
  - COUGH [None]
